FAERS Safety Report 13818546 (Version 3)
Quarter: 2019Q1

REPORT INFORMATION
  Report Type: Report from Study
  Country: PA (occurrence: PA)
  Receive Date: 20170801
  Receipt Date: 20190126
  Transmission Date: 20190417
  Serious: Yes (Death, Life-Threatening, Other)
  Sender: FDA-Public Use
  Company Number: PHHY2017PA071984

PATIENT
  Age: 46 Year
  Sex: Female
  Weight: 52 kg

DRUGS (2)
  1. AFINITOR [Suspect]
     Active Substance: EVEROLIMUS
     Indication: BREAST CANCER METASTATIC
     Dosage: 10 MG, QD
     Route: 048
     Dates: end: 20180408
  2. AROMASIN [Concomitant]
     Active Substance: EXEMESTANE
     Indication: PRODUCT USED FOR UNKNOWN INDICATION
     Dosage: 25 MG, QD
     Route: 048

REACTIONS (21)
  - Pain [Recovered/Resolved]
  - Breast cancer [Unknown]
  - Rash [Unknown]
  - Weight decreased [Unknown]
  - Oedema peripheral [Not Recovered/Not Resolved]
  - Haemoglobin decreased [Recovering/Resolving]
  - Pain in extremity [Unknown]
  - Chest pain [Recovered/Resolved]
  - Hepatic cancer metastatic [Unknown]
  - Aphonia [Unknown]
  - Liver injury [Recovering/Resolving]
  - Malignant neoplasm progression [Unknown]
  - Endocrine disorder [Unknown]
  - Back pain [Unknown]
  - Gait disturbance [Unknown]
  - Drug ineffective [Unknown]
  - Death [Fatal]
  - Dry skin [Unknown]
  - Asthenia [Unknown]
  - Decreased appetite [Unknown]
  - Discomfort [Recovered/Resolved]

NARRATIVE: CASE EVENT DATE: 20181019
